FAERS Safety Report 11774475 (Version 2)
Quarter: 2016Q1

REPORT INFORMATION
  Report Type: Spontaneous
  Country: US (occurrence: US)
  Receive Date: 20151124
  Receipt Date: 20160107
  Transmission Date: 20160525
  Serious: Yes (Other)
  Sender: FDA-Public Use
  Company Number: US-ENDO PHARMACEUTICALS INC.-2015-004409

PATIENT
  Age: 64 Year
  Sex: Male

DRUGS (3)
  1. VANTAS [Suspect]
     Active Substance: HISTRELIN ACETATE
     Route: 065
     Dates: start: 201405, end: 2015
  2. VANTAS [Suspect]
     Active Substance: HISTRELIN ACETATE
     Route: 065
     Dates: start: 20130328, end: 2014
  3. VANTAS [Suspect]
     Active Substance: HISTRELIN ACETATE
     Indication: PROSTATE CANCER
     Route: 065
     Dates: start: 20150728

REACTIONS (2)
  - Prostatic specific antigen increased [Not Recovered/Not Resolved]
  - Drug ineffective [Not Recovered/Not Resolved]

NARRATIVE: CASE EVENT DATE: 20151118
